FAERS Safety Report 18314481 (Version 4)
Quarter: 2021Q4

REPORT INFORMATION
  Report Type: Spontaneous
  Country: US (occurrence: US)
  Receive Date: 20200925
  Receipt Date: 20211006
  Transmission Date: 20220303
  Serious: No
  Sender: FDA-Public Use
  Company Number: US-PFIZER INC-2020366832

PATIENT
  Age: 67 Year
  Sex: Female

DRUGS (4)
  1. BRAFTOVI [Suspect]
     Active Substance: ENCORAFENIB
     Dosage: 75 MG
  2. BRAFTOVI [Suspect]
     Active Substance: ENCORAFENIB
     Dosage: 450 MG
  3. MEKTOVI [Suspect]
     Active Substance: BINIMETINIB
     Dosage: 15 MG
  4. MEKTOVI [Suspect]
     Active Substance: BINIMETINIB
     Dosage: 45 MG

REACTIONS (2)
  - Nasopharyngitis [Unknown]
  - Product dose omission issue [Unknown]

NARRATIVE: CASE EVENT DATE: 20201201
